FAERS Safety Report 19970781 (Version 1)
Quarter: 2021Q4

REPORT INFORMATION
  Report Type: Report from Study
  Country: None (occurrence: US)
  Receive Date: 20211020
  Receipt Date: 20211020
  Transmission Date: 20220303
  Serious: Yes (Other)
  Sender: FDA-Public Use
  Company Number: US-ABBVIE-21K-163-4123996-00

PATIENT
  Age: 51 Year
  Sex: Female

DRUGS (1)
  1. SKYRIZI [Suspect]
     Active Substance: RISANKIZUMAB-RZAA
     Indication: Psoriasis
     Dosage: 150 MG AT WEEK 0, 150MG AT WEEK 4, THEN 150MG EVERY 12 WEEKS THEREAFTER
     Route: 058
     Dates: start: 202108

REACTIONS (3)
  - Neoplasm malignant [Unknown]
  - Loss of personal independence in daily activities [Unknown]
  - Psoriasis [Unknown]

NARRATIVE: CASE EVENT DATE: 20211013
